FAERS Safety Report 9313499 (Version 1)
Quarter: 2013Q2

REPORT INFORMATION
  Report Type: Spontaneous
  Country: CH (occurrence: CH)
  Receive Date: 20130528
  Receipt Date: 20130528
  Transmission Date: 20140414
  Serious: Yes (Hospitalization)
  Sender: FDA-Public Use
  Company Number: CH-ROCHE-CID000000002430698

PATIENT
  Age: 45 Year
  Sex: Male

DRUGS (11)
  1. TOREM [Suspect]
     Indication: PRODUCT USED FOR UNKNOWN INDICATION
     Route: 048
     Dates: start: 20130311, end: 20130323
  2. PONSTAN [Suspect]
     Indication: PRODUCT USED FOR UNKNOWN INDICATION
     Route: 048
     Dates: start: 20130304, end: 20130323
  3. ADALAT [Concomitant]
     Route: 048
  4. SANDIMMUN [Concomitant]
     Route: 048
  5. PREDNISONE [Concomitant]
     Dosage: FREQUENCY: 2 PER HALF DAY
     Route: 065
     Dates: start: 20130323
  6. VALTREX [Concomitant]
     Route: 048
  7. DIFLUCAN [Concomitant]
     Route: 048
  8. NOPIL [Concomitant]
     Route: 048
  9. PANTAZOL [Concomitant]
     Route: 048
  10. CIPRALEX [Concomitant]
     Route: 048
  11. TRITTICO [Concomitant]
     Route: 065

REACTIONS (4)
  - Haematoma [Recovered/Resolved]
  - Thrombocytopenia [Recovering/Resolving]
  - Anaemia [Recovering/Resolving]
  - Renal failure acute [Recovering/Resolving]
